FAERS Safety Report 6908229-5 (Version None)
Quarter: 2010Q3

REPORT INFORMATION
  Report Type: 
  Country: None (occurrence: None)
  Receive Date: 20100708
  Receipt Date: 20090304
  Transmission Date: 20110219
  Serious: Yes (Death)
  Sender: FDA-Public Use
  Company Number: 2009160168

PATIENT
  Age: 64 Year
  Sex: Male
  Weight: 80.3 kg

DRUGS (13)
  1. CHANTIX [Suspect]
     Indication: SMOKING CESSATION THERAPY
     Dosage: ORAL
     Route: 048
     Dates: start: 20070315
  2. ALL OTHER THERAPEUTIC PRODUCTS [Concomitant]
  3. VYTORIN [Concomitant]
  4. FIORINAL [Concomitant]
  5. LORAZEPAM [Concomitant]
  6. VIAGRA [Concomitant]
  7. PLAVIX [Concomitant]
  8. LOTENSIN (BENAZEPRIL HYDROCHLRIDE) [Concomitant]
  9. CYMBALTA [Concomitant]
  10. COREG [Concomitant]
  11. COUMADIN [Concomitant]
  12. OMEGA-3 (OMEGA-3 TRIGLYCERIDES) [Concomitant]
  13. VITAMINS [Concomitant]

REACTIONS (1)
  - COMPLETED SUICIDE [None]
